FAERS Safety Report 9156196 (Version 1)
Quarter: 2013Q1

REPORT INFORMATION
  Report Type: Spontaneous
  Country: US (occurrence: US)
  Receive Date: 20130123
  Receipt Date: 20130123
  Transmission Date: 20140127
  Serious: No
  Sender: FDA-Public Use
  Company Number: US-BRACCO-007935

PATIENT
  Age: 55 Year
  Sex: Female

DRUGS (6)
  1. MULTIHANCE [Suspect]
     Indication: NUCLEAR MAGNETIC RESONANCE IMAGING BRAIN
     Dosage: ADMINISTERED AT THE BACK OF OF HER RIGHT HAND
     Route: 042
     Dates: start: 20120411, end: 20120411
  2. MULTIHANCE [Suspect]
     Indication: MIGRAINE
     Dosage: ADMINISTERED AT THE BACK OF OF HER RIGHT HAND
     Route: 042
     Dates: start: 20120411, end: 20120411
  3. MULTIHANCE [Suspect]
     Indication: DIZZINESS
     Dosage: ADMINISTERED AT THE BACK OF OF HER RIGHT HAND
     Route: 042
     Dates: start: 20120411, end: 20120411
  4. MULTIHANCE [Suspect]
     Indication: HYPOAESTHESIA
     Dosage: ADMINISTERED AT THE BACK OF OF HER RIGHT HAND
     Route: 042
     Dates: start: 20120411, end: 20120411
  5. MULTIHANCE [Suspect]
     Indication: VISION BLURRED
     Dosage: ADMINISTERED AT THE BACK OF OF HER RIGHT HAND
     Route: 042
     Dates: start: 20120411, end: 20120411
  6. MULTIHANCE [Suspect]
     Indication: BALANCE DISORDER
     Dosage: ADMINISTERED AT THE BACK OF OF HER RIGHT HAND
     Route: 042
     Dates: start: 20120411, end: 20120411

REACTIONS (2)
  - Thrombosis [Unknown]
  - Erythema [Unknown]
